FAERS Safety Report 6055575-6 (Version None)
Quarter: 2009Q1

REPORT INFORMATION
  Report Type: 
  Country: None (occurrence: None)
  Receive Date: 20090128
  Receipt Date: 20090119
  Transmission Date: 20090719
  Serious: Yes (Death, Life-Threatening, Other)
  Sender: FDA-Public Use
  Company Number: GB-JNJFOC-20090104183

PATIENT
  Age: 70 Year

DRUGS (12)
  1. REMICADE [Suspect]
     Indication: RHEUMATOID ARTHRITIS
     Route: 042
  2. PREDNISOLONE [Concomitant]
  3. AMIODARONE HCL [Concomitant]
  4. AMITRIPTYLINE HCL [Concomitant]
  5. ACETAMINOPHEN W/ CODEINE [Concomitant]
  6. DIGOXIN [Concomitant]
  7. FRUSEMIDE [Concomitant]
  8. LACTULOSE [Concomitant]
  9. LANSOPRAZOLE [Concomitant]
  10. LISINOPRIL [Concomitant]
  11. TRAMADOL HCL [Concomitant]
  12. WARFARIN SODIUM [Concomitant]

REACTIONS (1)
  - DEATH [None]
